FAERS Safety Report 23457658 (Version 1)
Quarter: 2024Q1

REPORT INFORMATION
  Report Type: Spontaneous
  Country: US (occurrence: US)
  Receive Date: 20240130
  Receipt Date: 20240130
  Transmission Date: 20240410
  Serious: No
  Sender: FDA-Public Use
  Company Number: US-JNJFOC-20240172644

PATIENT
  Sex: Male

DRUGS (2)
  1. DARZALEX FASPRO [Suspect]
     Active Substance: DARATUMUMAB\HYALURONIDASE-FIHJ
     Indication: Plasma cell myeloma
     Route: 058
     Dates: start: 20221209
  2. REVLIMID [Concomitant]
     Active Substance: LENALIDOMIDE
     Dosage: WAS ON 10 MG, TOOK 21 OUT OF 28 DAYS

REACTIONS (3)
  - Productive cough [Unknown]
  - Dysphagia [Unknown]
  - Dysphonia [Unknown]
